FAERS Safety Report 21859291 (Version 1)
Quarter: 2023Q1

REPORT INFORMATION
  Report Type: Spontaneous
  Country: US (occurrence: None)
  Receive Date: 20230112
  Receipt Date: 20230112
  Transmission Date: 20230417
  Serious: Yes (Hospitalization, Other)
  Sender: FDA-Public Use
  Company Number: None

PATIENT
  Age: 74 Year
  Sex: Male
  Weight: 61.2 kg

DRUGS (6)
  1. DUREZOL [Suspect]
     Active Substance: DIFLUPREDNATE
     Indication: Eye inflammation
     Dosage: OTHER QUANTITY : 5 ML;?OTHER FREQUENCY : 1 DROP, 4 TIMES;?
     Route: 047
  2. PREDNISOLONE [Suspect]
     Active Substance: PREDNISOLONE
  3. PREDNISONE [Suspect]
     Active Substance: PREDNISONE
  4. PRAVASTATIN [Concomitant]
     Active Substance: PRAVASTATIN
  5. VITAMIN D3 [Concomitant]
     Active Substance: CHOLECALCIFEROL
  6. Q10 supplement [Concomitant]

REACTIONS (4)
  - Asthenia [None]
  - Heart rate increased [None]
  - Respiratory rate increased [None]
  - Chest pain [None]

NARRATIVE: CASE EVENT DATE: 20221229
